FAERS Safety Report 8875845 (Version 2)
Quarter: 2013Q2

REPORT INFORMATION
  Report Type: Report from Study
  Country: DE (occurrence: DE)
  Receive Date: 20121030
  Receipt Date: 20130521
  Transmission Date: 20140414
  Serious: Yes (Disabling)
  Sender: FDA-Public Use
  Company Number: DE-GLAXOSMITHKLINE-B0840961A

PATIENT
  Sex: Female
  Weight: 97 kg

DRUGS (6)
  1. LAPATINIB [Suspect]
     Indication: BREAST CANCER
     Dosage: 750MG PER DAY
     Route: 048
     Dates: start: 20120724
  2. PACLITAXEL [Suspect]
     Indication: BREAST CANCER
     Dosage: 160MG WEEKLY
     Route: 042
     Dates: start: 20120724
  3. MYOCET [Suspect]
     Indication: BREAST CANCER
     Dosage: 40MG WEEKLY
     Route: 042
     Dates: start: 20120724
  4. HERCEPTIN [Suspect]
     Indication: BREAST CANCER
     Dosage: 582MG EVERY 3 WEEKS
     Route: 042
     Dates: start: 20120724
  5. LISINOPRIL [Concomitant]
  6. BISOPROLOL [Concomitant]

REACTIONS (1)
  - Palmar-plantar erythrodysaesthesia syndrome [Recovered/Resolved]
